FAERS Safety Report 10049189 (Version 2)
Quarter: 2014Q2

REPORT INFORMATION
  Report Type: Spontaneous
  Country: US (occurrence: US)
  Receive Date: 20140401
  Receipt Date: 20140401
  Transmission Date: 20141212
  Serious: Yes (Hospitalization)
  Sender: FDA-Public Use
  Company Number: US-BIOGENIDEC-2014BI013667

PATIENT
  Age: 44 Year
  Sex: Female

DRUGS (19)
  1. TYSABRI [Suspect]
     Indication: MULTIPLE SCLEROSIS
     Route: 042
     Dates: start: 20111101
  2. BACLOFEN [Concomitant]
  3. RITALIN [Concomitant]
  4. VITAMIN D [Concomitant]
  5. IMITREX [Concomitant]
     Indication: HEADACHE
  6. FENTANYL [Concomitant]
  7. OXYTROL [Concomitant]
  8. BACLOFEN [Concomitant]
     Indication: MUSCLE SPASTICITY
  9. VITAMIN C [Concomitant]
  10. NORCO [Concomitant]
  11. AMPYRA [Concomitant]
  12. VENTOLIN [Concomitant]
     Route: 055
  13. ROBAXIN [Concomitant]
  14. NUVARING [Concomitant]
  15. LIDODERM [Concomitant]
     Route: 062
  16. XANAX [Concomitant]
  17. PROZAC [Concomitant]
  18. CELEBREX [Concomitant]
  19. WELBUTRIN [Concomitant]

REACTIONS (5)
  - Multiple sclerosis relapse [Not Recovered/Not Resolved]
  - Pulmonary embolism [Recovered/Resolved]
  - Multiple sclerosis [Not Recovered/Not Resolved]
  - Fatigue [Not Recovered/Not Resolved]
  - Gait disturbance [Not Recovered/Not Resolved]
